FAERS Safety Report 4994760-9 (Version None)
Quarter: 2006Q1

REPORT INFORMATION
  Report Type: 
  Country: None (occurrence: None)
  Receive Date: 20060313
  Receipt Date: 20050602
  Transmission Date: 20060701
  Serious: Yes (Life-Threatening, Hospitalization)
  Sender: FDA-Public Use
  Company Number: PHEH2005US06273

PATIENT
  Age: 76 Year
  Sex: Male
  Weight: 102 kg

DRUGS (2)
  1. TRILEPTAL [Suspect]
     Indication: EPILEPSY
     Dosage: 600,BID,ORAL
     Route: 048
     Dates: start: 20040814, end: 20050214
  2. DIOVAN [Concomitant]

REACTIONS (7)
  - COLITIS [None]
  - GASTRITIS [None]
  - HYPERTENSION [None]
  - HYPONATRAEMIA [None]
  - OEDEMA [None]
  - RASH [None]
  - TACHYCARDIA [None]
